FAERS Safety Report 5174058-9 (Version None)
Quarter: 2006Q4

REPORT INFORMATION
  Report Type: 
  Country: None (occurrence: None)
  Receive Date: 20061206
  Receipt Date: 20061120
  Transmission Date: 20070319
  Serious: Yes (Other)
  Sender: FDA-Public Use
  Company Number: US-2006-018623

PATIENT
  Age: 46 Year
  Sex: Female

DRUGS (3)
  1. BETASERON [Suspect]
     Indication: MULTIPLE SCLEROSIS
     Dosage: SEE IMAGE
     Dates: start: 20020422, end: 20060524
  2. BETASERON [Suspect]
     Indication: MULTIPLE SCLEROSIS
     Dosage: SEE IMAGE
     Dates: start: 20060602, end: 20060609
  3. BETASERON [Suspect]
     Indication: MULTIPLE SCLEROSIS
     Dosage: SEE IMAGE
     Dates: start: 20060814, end: 20060901

REACTIONS (5)
  - HEPATIC ENZYME INCREASED [None]
  - HERPES ZOSTER [None]
  - IMMUNOSUPPRESSION [None]
  - INJECTION SITE INFECTION [None]
  - STAPHYLOCOCCAL INFECTION [None]
